FAERS Safety Report 25877036 (Version 1)
Quarter: 2025Q4

REPORT INFORMATION
  Report Type: Spontaneous
  Country: CN (occurrence: CN)
  Receive Date: 20251003
  Receipt Date: 20251003
  Transmission Date: 20260118
  Serious: Yes (Hospitalization, Other)
  Sender: ACCORD
  Company Number: CN-Accord-506458

PATIENT
  Age: 65 Year
  Sex: Female
  Weight: 44 kg

DRUGS (2)
  1. CAPECITABINE [Suspect]
     Active Substance: CAPECITABINE
     Indication: Colon cancer
     Dosage: (1.5 G IN THE MORNING AND 1.0 G IN THE EVENING (DAYS 1-14/EVERY 21 DAYS)) THE ADJUVANT CHEMOTHERAPY
     Dates: start: 20230802, end: 202312
  2. OXALIPLATIN [Suspect]
     Active Substance: OXALIPLATIN
     Indication: Colon cancer
     Dosage: (ON DAY 1) THE ADJUVANT CHEMOTHERAPY WAS PERFORMED IN CYCLES 1-5 AFTER SURGERY
     Dates: start: 20230802, end: 202312

REACTIONS (3)
  - Interstitial lung disease [Recovering/Resolving]
  - Condition aggravated [Recovering/Resolving]
  - Carbohydrate antigen 19-9 increased [Recovering/Resolving]

NARRATIVE: CASE EVENT DATE: 20231001
